FAERS Safety Report 14640195 (Version 2)
Quarter: 2019Q2

REPORT INFORMATION
  Report Type: Report from Study
  Country: ZA (occurrence: ZA)
  Receive Date: 20180315
  Receipt Date: 20190402
  Transmission Date: 20190711
  Serious: Yes (Hospitalization)
  Sender: FDA-Public Use
  Company Number: PHHY2018ZA036883

PATIENT
  Age: 67 Year
  Sex: Female

DRUGS (1)
  1. CO-ZOMEVEK [Suspect]
     Active Substance: HYDROCHLOROTHIAZIDE\VALSARTAN
     Indication: HYPERTENSION
     Dosage: 1 DF, (HYDROCHLORTHIAZIDE 12.5 MG, VALSARTAN 160 MG)
     Route: 048
     Dates: start: 201810

REACTIONS (4)
  - Dizziness [Unknown]
  - Bipolar disorder [Unknown]
  - Loss of consciousness [Unknown]
  - Blood glucose decreased [Unknown]

NARRATIVE: CASE EVENT DATE: 20190324
